FAERS Safety Report 8054450-5 (Version None)
Quarter: 2012Q1

REPORT INFORMATION
  Report Type: 
  Country: None (occurrence: None)
  Receive Date: 20120118
  Receipt Date: 20120110
  Transmission Date: 20120608
  Serious: Yes (Hospitalization, Other)
  Sender: FDA-Public Use
  Company Number: US-ASTRAZENECA-2012SE00354

PATIENT
  Age: 77 Year
  Sex: Female

DRUGS (3)
  1. NEXIUM [Suspect]
     Route: 048
  2. ZANTAC [Concomitant]
  3. PLAVIX [Concomitant]

REACTIONS (8)
  - HYPERGLYCAEMIA [None]
  - ASPIRATION [None]
  - DEMYELINATION [None]
  - CARDIAC DISORDER [None]
  - TRANSIENT ISCHAEMIC ATTACK [None]
  - LUNG DISORDER [None]
  - PNEUMONIA [None]
  - DRUG DOSE OMISSION [None]
